FAERS Safety Report 9395931 (Version 1)
Quarter: 2013Q3

REPORT INFORMATION
  Report Type: Spontaneous
  Country: US (occurrence: US)
  Receive Date: 20130711
  Receipt Date: 20130711
  Transmission Date: 20140515
  Serious: No
  Sender: FDA-Public Use
  Company Number: US-TEVA-418030USA

PATIENT
  Age: 39 Year
  Sex: Female
  Weight: 48.12 kg

DRUGS (3)
  1. PARAGARD 380A [Suspect]
     Indication: CONTRACEPTION
     Route: 015
     Dates: start: 20130529
  2. SYNTHROID [Concomitant]
     Indication: THYROID THERAPY
     Dosage: 112 MCH QD
     Dates: start: 2010
  3. CYTOMEL [Concomitant]
     Indication: THYROID THERAPY
     Dosage: 10 MICROGRAM DAILY;
     Route: 048
     Dates: start: 2010

REACTIONS (3)
  - Menorrhagia [Recovered/Resolved]
  - Menorrhagia [Recovered/Resolved]
  - Dysmenorrhoea [Not Recovered/Not Resolved]
